FAERS Safety Report 5632969-1 (Version None)
Quarter: 2008Q1

REPORT INFORMATION
  Report Type: 
  Country: None (occurrence: None)
  Receive Date: 20080214
  Receipt Date: 20080130
  Transmission Date: 20080703
  Serious: Yes (Hospitalization)
  Sender: FDA-Public Use
  Company Number: T08-JPN-00382-01

PATIENT
  Age: 82 Year
  Sex: Female
  Weight: 44 kg

DRUGS (1)
  1. MEMANTINE HCL [Suspect]
     Indication: DEMENTIA ALZHEIMER'S TYPE
     Dosage: 20 MG QD PO
     Route: 048
     Dates: start: 20061223, end: 20080123

REACTIONS (7)
  - ACUTE RESPIRATORY DISTRESS SYNDROME [None]
  - FEMORAL NECK FRACTURE [None]
  - NUTRITIONAL CONDITION ABNORMAL [None]
  - PNEUMONIA [None]
  - PSEUDOMONAS INFECTION [None]
  - SPUTUM CULTURE POSITIVE [None]
  - URINARY TRACT INFECTION [None]
